FAERS Safety Report 9122494 (Version 2)
Quarter: 2013Q1

REPORT INFORMATION
  Report Type: Spontaneous
  Country: US (occurrence: US)
  Receive Date: 20130227
  Receipt Date: 20130315
  Transmission Date: 20140127
  Serious: Yes (Hospitalization, Other)
  Sender: FDA-Public Use
  Company Number: PHEH2013US004610

PATIENT
  Age: 66 Year
  Sex: Female

DRUGS (17)
  1. TASIGNA [Suspect]
     Indication: CHRONIC MYELOID LEUKAEMIA
     Dosage: 400 MG, BID
     Route: 048
     Dates: start: 20130215
  2. METOPROLOL SUCCINATE [Concomitant]
     Dosage: 1 OT, UNK
  3. IBUPROFEN [Concomitant]
  4. LISINOPRIL [Concomitant]
     Dosage: 2.5 MG, UNK
     Route: 048
  5. METOPROLOL [Concomitant]
  6. UBIDECARENONE [Concomitant]
  7. VITAMIN D3 [Concomitant]
     Dosage: UNK UKN, UNK
     Dates: start: 20120719
  8. NITROSTAT [Concomitant]
  9. CRESTON [Concomitant]
     Dosage: 10 MG, UNK
     Dates: start: 20121115
  10. BUPROPION HCL [Concomitant]
     Dosage: 30 MG, UNK
     Route: 048
  11. ACETAMINOPHEN [Concomitant]
     Dosage: 1 DF, Q6H
     Route: 048
  12. ASPIRIN [Concomitant]
     Dosage: 81 MG, UNK
     Route: 048
     Dates: start: 20030422
  13. COLACE [Concomitant]
     Dosage: 100 MG, BID
     Route: 048
     Dates: start: 20130304
  14. MAALOX                                  /NET/ [Concomitant]
     Indication: DYSPEPSIA
     Dosage: 30 ML, Q2H
  15. OMEPRAZOLE [Concomitant]
     Dosage: 20 MG, BID
     Dates: start: 20130227
  16. RANITIDINE HCL [Concomitant]
     Dosage: 150 MG, BID
     Route: 048
     Dates: start: 20130227
  17. COQ-10 [Concomitant]

REACTIONS (4)
  - Pancreatitis [Recovered/Resolved]
  - Rash [Unknown]
  - Dizziness [Unknown]
  - Abdominal pain upper [Unknown]
